FAERS Safety Report 5628746-8 (Version None)
Quarter: 2008Q1

REPORT INFORMATION
  Report Type: 
  Country: None (occurrence: None)
  Receive Date: 20080215
  Receipt Date: 20080215
  Transmission Date: 20080703
  Serious: Yes (Life-Threatening, Hospitalization)
  Sender: FDA-Public Use
  Company Number: None

PATIENT
  Age: 45 Year
  Sex: Female

DRUGS (1)
  1. CELEXA [Suspect]
     Dosage: 1 TABLET/20MG ONCE DAILY PO
     Route: 048
     Dates: start: 20080124, end: 20080127

REACTIONS (4)
  - CONVULSION [None]
  - DRUG INTERACTION [None]
  - HYPONATRAEMIA [None]
  - METABOLIC DISORDER [None]
